FAERS Safety Report 15050799 (Version 2)
Quarter: 2018Q3

REPORT INFORMATION
  Report Type: Spontaneous
  Country: JP (occurrence: JP)
  Receive Date: 20180622
  Receipt Date: 20180707
  Transmission Date: 20181010
  Serious: Yes (Hospitalization)
  Sender: FDA-Public Use
  Company Number: JP-NOVOPROD-605984

PATIENT
  Age: 70 Year
  Sex: Female

DRUGS (4)
  1. NOVOLIN N [Suspect]
     Active Substance: INSULIN HUMAN
     Indication: LATENT AUTOIMMUNE DIABETES IN ADULTS
     Dosage: 8 U, QD (BED TIME)
     Route: 058
     Dates: start: 20171222
  2. NOVOLIN R [Suspect]
     Active Substance: INSULIN HUMAN
     Indication: LATENT AUTOIMMUNE DIABETES IN ADULTS
     Dosage: 10 IU, QD (4+4+2)
     Route: 058
     Dates: start: 20171222
  3. NOVOLIN N [Suspect]
     Active Substance: INSULIN HUMAN
     Dosage: 20 U, QD
     Route: 058
     Dates: start: 20180604, end: 20180604
  4. NOVOLIN N [Suspect]
     Active Substance: INSULIN HUMAN
     Dosage: 14 U, QD (BED TIME)
     Route: 058
     Dates: start: 20180417

REACTIONS (4)
  - Anti-insulin antibody [Unknown]
  - Drug effect incomplete [Unknown]
  - Hepatic encephalopathy [Recovered/Resolved]
  - Condition aggravated [Recovered/Resolved]

NARRATIVE: CASE EVENT DATE: 20180405
